FAERS Safety Report 5698976-8 (Version None)
Quarter: 2008Q2

REPORT INFORMATION
  Report Type: 
  Country: None (occurrence: None)
  Receive Date: 20080408
  Receipt Date: 20060914
  Transmission Date: 20081010
  Serious: No
  Sender: FDA-Public Use
  Company Number: US-BAYER-US-2006-027344

PATIENT
  Sex: Female
  Weight: 103 kg

DRUGS (9)
  1. ULTRAVIST (PHARMACY BULK) [Suspect]
     Indication: COMPUTERISED TOMOGRAM ABDOMEN
     Dosage: UNIT DOSE: 120 ML
     Route: 042
     Dates: start: 20060913, end: 20060913
  2. CONTRAST MEDIA [Concomitant]
     Indication: COMPUTERISED TOMOGRAM ABDOMEN
     Route: 048
     Dates: start: 20060913, end: 20060913
  3. ALBUTEROL [Concomitant]
     Indication: ASTHMA
  4. AVAPRO [Concomitant]
  5. HORMONES AND RELATED AGENTS [Concomitant]
     Indication: HORMONE REPLACEMENT THERAPY
  6. HYDROCHLOROTHIAZIDE [Concomitant]
  7. LIPITOR [Concomitant]
     Indication: BLOOD CHOLESTEROL INCREASED
  8. ASPIRIN [Concomitant]
  9. ZANTAC [Concomitant]

REACTIONS (1)
  - URTICARIA [None]
